FAERS Safety Report 24815993 (Version 1)
Quarter: 2025Q1

REPORT INFORMATION
  Report Type: Spontaneous
  Country: GB (occurrence: GB)
  Receive Date: 20250107
  Receipt Date: 20250107
  Transmission Date: 20250408
  Serious: Yes (Other)
  Sender: RANBAXY
  Company Number: GB-SUN PHARMACEUTICAL INDUSTRIES LTD-2024RR-486936

PATIENT
  Age: 45 Year
  Sex: Female
  Weight: 60 kg

DRUGS (3)
  1. BACLOFEN [Suspect]
     Active Substance: BACLOFEN
     Indication: Adverse drug reaction
     Route: 065
     Dates: start: 20241222
  2. ALLOPURINOL [Concomitant]
     Active Substance: ALLOPURINOL
     Indication: Inflammatory bowel disease
     Route: 065
  3. AZATHIOPRINE [Concomitant]
     Active Substance: AZATHIOPRINE
     Indication: Inflammatory bowel disease
     Route: 065

REACTIONS (6)
  - Confusional state [Unknown]
  - Epistaxis [Unknown]
  - Dry mouth [Unknown]
  - Vision blurred [Unknown]
  - Dizziness [Unknown]
  - Fatigue [Unknown]

NARRATIVE: CASE EVENT DATE: 20241223
